FAERS Safety Report 18198283 (Version 1)
Quarter: 2020Q3

REPORT INFORMATION
  Report Type: Spontaneous
  Country: US (occurrence: US)
  Receive Date: 20200826
  Receipt Date: 20200826
  Transmission Date: 20201103
  Serious: Yes (Hospitalization, Other)
  Sender: FDA-Public Use
  Company Number: US-ELI_LILLY_AND_COMPANY-US202008002628

PATIENT

DRUGS (8)
  1. OMEPRAZOLE. [Suspect]
     Active Substance: OMEPRAZOLE
     Indication: NAUSEA
     Dosage: UNK, UNKNOWN
     Route: 064
     Dates: end: 20161005
  2. ABILIFY [Suspect]
     Active Substance: ARIPIPRAZOLE
     Indication: ANXIETY
     Dosage: 2 MG, UNKNOWN
     Route: 064
     Dates: end: 20161005
  3. CREON [Suspect]
     Active Substance: PANCRELIPASE AMYLASE\PANCRELIPASE LIPASE\PANCRELIPASE PROTEASE
     Indication: AUTOIMMUNE PANCREATITIS
     Dosage: UNK, UNKNOWN
     Route: 064
     Dates: end: 20161005
  4. SYNTHROID [Suspect]
     Active Substance: LEVOTHYROXINE SODIUM
     Indication: HYPOTHYROIDISM
     Dosage: UNK, UNKNOWN
     Route: 064
     Dates: end: 20161005
  5. APIDRA [Suspect]
     Active Substance: INSULIN GLULISINE
     Indication: TYPE 2 DIABETES MELLITUS
     Dosage: UNK, UNKNOWN
     Route: 064
     Dates: end: 20161005
  6. LANTUS [Suspect]
     Active Substance: INSULIN GLARGINE
     Indication: TYPE 1 DIABETES MELLITUS
     Dosage: UNK, UNKNOWN
     Route: 064
     Dates: end: 20161005
  7. PERCOCET [OXYCODONE HYDROCHLORIDE;OXYCODONE T [Suspect]
     Active Substance: ACETAMINOPHEN\OXYCODONE HYDROCHLORIDE\OXYCODONE TEREPHTHALATE
     Indication: AUTOIMMUNE PANCREATITIS
     Dosage: UNK, UNKNOWN
     Route: 064
     Dates: end: 20160401
  8. CYMBALTA [Suspect]
     Active Substance: DULOXETINE HYDROCHLORIDE
     Indication: DEPRESSION
     Dosage: UNK, UNKNOWN
     Route: 064
     Dates: end: 20161005

REACTIONS (12)
  - Hypoglycaemia neonatal [Recovered/Resolved]
  - Haemangioma [Recovered/Resolved]
  - Neonatal respiratory distress [Recovered/Resolved]
  - Sepsis neonatal [Recovered/Resolved]
  - Dyskinesia neonatal [Recovered/Resolved]
  - Premature baby [Unknown]
  - Poor feeding infant [Recovered/Resolved]
  - Jaundice neonatal [Recovered/Resolved]
  - Transient tachypnoea of the newborn [Recovered/Resolved]
  - Neonatal intestinal dilatation [Recovered/Resolved]
  - Extrapyramidal disorder [Recovered/Resolved]
  - Foetal exposure during pregnancy [Recovered/Resolved]
